FAERS Safety Report 7637739-0 (Version None)
Quarter: 2011Q3

REPORT INFORMATION
  Report Type: 
  Country: None (occurrence: None)
  Receive Date: 20110727
  Receipt Date: 20110720
  Transmission Date: 20111222
  Serious: Yes (Other)
  Sender: FDA-Public Use
  Company Number: US-ASTRAZENECA-2008UW11251

PATIENT
  Age: 460 Month
  Sex: Male
  Weight: 88 kg

DRUGS (12)
  1. SEROQUEL [Suspect]
     Route: 048
     Dates: start: 20060101, end: 20070501
  2. SEROQUEL [Suspect]
     Indication: BIPOLAR DISORDER
     Route: 048
     Dates: start: 20041022
  3. SEROQUEL [Suspect]
     Indication: DEPRESSION
     Route: 048
     Dates: start: 20041022
  4. NORVASC [Concomitant]
     Route: 048
     Dates: start: 20041129
  5. SEROQUEL [Suspect]
     Route: 048
     Dates: start: 20060101, end: 20070501
  6. ABILIFY [Concomitant]
     Dates: start: 20070101
  7. TEGRETOL [Concomitant]
  8. PREDNISONE [Concomitant]
     Route: 048
     Dates: start: 20040901
  9. NEXIUM [Concomitant]
     Route: 048
     Dates: start: 20041129
  10. ZYPREXA [Concomitant]
     Dates: start: 20080101
  11. TRILEPTAL [Concomitant]
     Route: 048
     Dates: start: 20041001
  12. TIZANIDINE HCL [Concomitant]
     Dosage: TK TWO TS PO Q 6 TO 8 H
     Route: 048
     Dates: start: 20040828

REACTIONS (4)
  - HYPERLIPIDAEMIA [None]
  - BLOOD CHOLESTEROL INCREASED [None]
  - CARDIAC DISORDER [None]
  - TYPE 2 DIABETES MELLITUS [None]
